FAERS Safety Report 8087664-9 (Version None)
Quarter: 2012Q1

REPORT INFORMATION
  Report Type: 
  Country: None (occurrence: None)
  Receive Date: 20120128
  Receipt Date: 20110408
  Transmission Date: 20120608
  Serious: No
  Sender: FDA-Public Use
  Company Number: US-ABBOTT-11P-163-0717985-00

PATIENT
  Sex: Female
  Weight: 71.732 kg

DRUGS (11)
  1. HYZAAR [Concomitant]
     Indication: HYPERTENSION
  2. MELOXICAM [Concomitant]
     Indication: PRODUCT USED FOR UNKNOWN INDICATION
  3. HUMIRA [Suspect]
     Indication: RHEUMATOID ARTHRITIS
     Dates: start: 20110101
  4. METHOTREXATE [Concomitant]
     Indication: RHEUMATOID ARTHRITIS
  5. COSMIN DS [Concomitant]
     Indication: PRODUCT USED FOR UNKNOWN INDICATION
  6. LUMIGAN [Concomitant]
     Indication: GLAUCOMA
     Dates: start: 20110301
  7. CALTRATE [Concomitant]
     Indication: PRODUCT USED FOR UNKNOWN INDICATION
  8. CENTRUM [Concomitant]
     Indication: PRODUCT USED FOR UNKNOWN INDICATION
  9. IRON [Concomitant]
     Indication: BLOOD IRON DECREASED
  10. FOLIC ACID [Concomitant]
     Indication: PRODUCT USED FOR UNKNOWN INDICATION
  11. RHINOCORT [Concomitant]
     Indication: SINUSITIS

REACTIONS (1)
  - EPISTAXIS [None]
